FAERS Safety Report 4280158-8 (Version None)
Quarter: 2004Q1

REPORT INFORMATION
  Report Type: 
  Country: None (occurrence: None)
  Receive Date: 20040126
  Receipt Date: 20040114
  Transmission Date: 20041129
  Serious: Yes (Other)
  Sender: FDA-Public Use
  Company Number: 200410222BCC

PATIENT
  Age: 76 Year
  Sex: Male
  Weight: 82.5547 kg

DRUGS (2)
  1. REGIMEN BAYER 81MG (ACETYLSALICYLIC ACID) [Suspect]
     Indication: MYOCARDIAL INFARCTION
     Dosage: 81 MG, QD, ORAL
     Route: 048
     Dates: start: 20031001, end: 20040113
  2. REGIMEN BAYER 81MG (ACETYLSALICYLIC ACID) [Suspect]
     Indication: PROPHYLAXIS
     Dosage: 81 MG, QD, ORAL
     Route: 048
     Dates: start: 20031001, end: 20040113

REACTIONS (2)
  - HAEMATOCHEZIA [None]
  - PALPITATIONS [None]
